FAERS Safety Report 9894740 (Version 6)
Quarter: 2017Q4

REPORT INFORMATION
  Report Type: Spontaneous
  Country: US (occurrence: US)
  Receive Date: 20140213
  Receipt Date: 20171116
  Transmission Date: 20180321
  Serious: Yes (Death, Hospitalization, Other)
  Sender: FDA-Public Use
  Company Number: US-009507513-1402USA004144

PATIENT
  Sex: Female
  Weight: 78.23 kg

DRUGS (4)
  1. FOSAMAX [Suspect]
     Active Substance: ALENDRONATE SODIUM
     Dosage: 70 MG, QW
     Route: 048
     Dates: start: 20000405, end: 20111228
  2. VITAMINS (UNSPECIFIED) [Concomitant]
     Active Substance: VITAMINS
     Dosage: UNK DF, QD
     Route: 065
     Dates: start: 1970
  3. FOSAMAX [Suspect]
     Active Substance: ALENDRONATE SODIUM
     Indication: OSTEOPOROSIS
     Dosage: 10 MG, UNK
     Route: 048
     Dates: start: 20000405, end: 20111228
  4. ALENDRONATE SODIUM. [Suspect]
     Active Substance: ALENDRONATE SODIUM
     Indication: OSTEOPOROSIS
     Dosage: 70 MG, UNK
     Route: 048
     Dates: start: 20091010, end: 20110328

REACTIONS (44)
  - Hip fracture [Unknown]
  - Oral candidiasis [Unknown]
  - Bacterial infection [Unknown]
  - Pain [Unknown]
  - Osteopenia [Unknown]
  - Cerumen impaction [Unknown]
  - Goitre [Unknown]
  - Gastrooesophageal reflux disease [Unknown]
  - Hypoacusis [Unknown]
  - Thyroidectomy [Unknown]
  - Hysterectomy [Unknown]
  - Erythema [Unknown]
  - Nausea [Unknown]
  - Death [Fatal]
  - Bacterial infection [Unknown]
  - Blood potassium decreased [Unknown]
  - Hypertension [Unknown]
  - Hypercholesterolaemia [Unknown]
  - Visual acuity reduced [Unknown]
  - Cataract [Unknown]
  - Glucose tolerance impaired [Unknown]
  - Appendicectomy [Unknown]
  - Nasal congestion [Unknown]
  - Upper-airway cough syndrome [Unknown]
  - Head injury [Unknown]
  - Dyspepsia [Unknown]
  - Femur fracture [Unknown]
  - Hip surgery [Unknown]
  - Hypertensive heart disease [Unknown]
  - Hypotension [Unknown]
  - Swelling [Unknown]
  - Cataract operation [Unknown]
  - Stress [Unknown]
  - Gastritis [Unknown]
  - Respiratory tract congestion [Unknown]
  - Low turnover osteopathy [Unknown]
  - Bacterial infection [Unknown]
  - Hypertonic bladder [Unknown]
  - Eye operation [Unknown]
  - Glaucoma [Unknown]
  - Clostridium difficile colitis [Not Recovered/Not Resolved]
  - Dehydration [Unknown]
  - Inflammation [Unknown]
  - Hypertension [Unknown]

NARRATIVE: CASE EVENT DATE: 20000420
